FAERS Safety Report 24289490 (Version 2)
Quarter: 2024Q4

REPORT INFORMATION
  Report Type: Spontaneous
  Country: FR (occurrence: FR)
  Receive Date: 20240906
  Receipt Date: 20241015
  Transmission Date: 20250114
  Serious: Yes (Hospitalization, Other)
  Sender: ROCHE
  Company Number: FR-ROCHE-10000069622

PATIENT
  Age: 84 Year
  Sex: Male

DRUGS (3)
  1. VABYSMO [Suspect]
     Active Substance: FARICIMAB-SVOA
     Indication: Age-related macular degeneration
     Route: 050
     Dates: start: 20240213
  2. EYLEA [Concomitant]
     Active Substance: AFLIBERCEPT
     Dates: start: 202404
  3. LUCENTIS [Concomitant]
     Active Substance: RANIBIZUMAB

REACTIONS (7)
  - Visual impairment [Unknown]
  - Vitritis [Unknown]
  - Hypotony of eye [Unknown]
  - Choroidal effusion [Unknown]
  - Retinal detachment [Unknown]
  - Proliferative vitreoretinopathy [Unknown]
  - Blindness [Unknown]

NARRATIVE: CASE EVENT DATE: 20240701
